FAERS Safety Report 12648700 (Version 2)
Quarter: 2016Q3

REPORT INFORMATION
  Report Type: Spontaneous
  Country: US (occurrence: US)
  Receive Date: 20160812
  Receipt Date: 20160913
  Transmission Date: 20161109
  Serious: No
  Sender: FDA-Public Use
  Company Number: US-PFIZER INC-2016356465

PATIENT
  Age: 64 Year
  Sex: Female
  Weight: 91 kg

DRUGS (2)
  1. ADVIL [Suspect]
     Active Substance: IBUPROFEN
     Dosage: 600 MG, DAILY, 400 MG IN THE MORNING AND 200 MG AT NIGHT
     Route: 048
     Dates: start: 201512
  2. ADVIL [Suspect]
     Active Substance: IBUPROFEN
     Dosage: STARTED TAKING THE PRODUCT AT NIGHT REGULARLY
     Dates: start: 201604

REACTIONS (3)
  - Heart rate increased [Unknown]
  - Feeling of relaxation [Unknown]
  - Therapeutic response unexpected [Unknown]

NARRATIVE: CASE EVENT DATE: 201512
